FAERS Safety Report 5005697-3 (Version None)
Quarter: 2006Q2

REPORT INFORMATION
  Report Type: 
  Country: None (occurrence: None)
  Receive Date: 20060518
  Receipt Date: 20060418
  Transmission Date: 20061013
  Serious: Yes (Other)
  Sender: FDA-Public Use
  Company Number: PHNR2006AU00688

PATIENT
  Age: 52 Year
  Sex: Female

DRUGS (3)
  1. ZOMETA [Suspect]
     Indication: BREAST CANCER
     Dosage: UNK, UNK
     Dates: start: 20021021
  2. ZOLADEX [Concomitant]
  3. AROMASIN [Concomitant]

REACTIONS (3)
  - BONE DISORDER [None]
  - JAW LESION EXCISION [None]
  - OSTEONECROSIS [None]
